FAERS Safety Report 5919810-4 (Version None)
Quarter: 2008Q4

REPORT INFORMATION
  Report Type: 
  Country: None (occurrence: None)
  Receive Date: 20081015
  Receipt Date: 20080930
  Transmission Date: 20090506
  Serious: Yes (Hospitalization)
  Sender: FDA-Public Use
  Company Number: JP-PFIZER INC-2008073234

PATIENT
  Sex: Female

DRUGS (11)
  1. AMLODIN [Suspect]
     Indication: HYPERTENSION
     Dosage: DAILY DOSE:5MG
     Route: 048
     Dates: start: 20030101, end: 20080415
  2. ENALAPRIL MALEATE [Suspect]
     Indication: HYPERTENSION
     Route: 048
     Dates: start: 20080401
  3. URSO 250 [Concomitant]
     Indication: CHOLELITHIASIS
     Dosage: DAILY DOSE:200MG-FREQ:FREQUENCY: DAILY
     Route: 048
     Dates: start: 19890101, end: 20080815
  4. MUCODYNE [Concomitant]
     Dosage: DAILY DOSE:1500MG-FREQ:FREQUENCY: DAILY
     Route: 048
  5. ASPIRIN [Concomitant]
     Indication: CEREBRAL INFARCTION
     Route: 048
     Dates: start: 20031201, end: 20080815
  6. UNIPHYL [Concomitant]
     Dosage: DAILY DOSE:200MG
     Route: 048
     Dates: end: 20080815
  7. CLARITIN [Concomitant]
     Indication: RHINITIS ALLERGIC
     Dosage: DAILY DOSE:10MG-FREQ:FREQUENCY: DAILY
     Route: 048
     Dates: start: 20070801, end: 20080815
  8. MONTELUKAST SODIUM [Concomitant]
     Dosage: DAILY DOSE:10MG-FREQ:FREQUENCY: DAILY
     Route: 048
     Dates: start: 20070801, end: 20080815
  9. INTAL [Concomitant]
     Dates: start: 20070801
  10. PULMICORT-100 [Concomitant]
     Indication: ASTHMA
     Dosage: DAILY DOSE:200MCG-FREQ:FREQUENCY: DAILY
     Route: 055
     Dates: start: 20070801
  11. MOHRUS [Concomitant]
     Indication: ARTHRALGIA
     Route: 061
     Dates: start: 19940101, end: 20080815

REACTIONS (2)
  - LEUKOCYTOCLASTIC VASCULITIS [None]
  - TUBULOINTERSTITIAL NEPHRITIS [None]
